FAERS Safety Report 4718243-6 (Version None)
Quarter: 2005Q3

REPORT INFORMATION
  Report Type: 
  Country: None (occurrence: None)
  Receive Date: 20050718
  Receipt Date: 20050718
  Transmission Date: 20060218
  Serious: Yes (Disabling)
  Sender: FDA-Public Use
  Company Number: None

PATIENT
  Age: 75 Year
  Sex: Male

DRUGS (18)
  1. TERAZOSIN [Suspect]
     Indication: BENIGN PROSTATIC HYPERPLASIA
     Dosage: 10MG PO QHS
     Route: 048
     Dates: start: 20021216, end: 20050413
  2. ADVAIR DISKUS 100/50 [Concomitant]
  3. ALBUTEROL [Concomitant]
  4. ALBUTEROL S04 [Concomitant]
  5. ENALAPRIL [Concomitant]
  6. FLUTICASONE PROPIONATE [Concomitant]
  7. FUROSEMIDE [Concomitant]
  8. GLIPIZIDE [Concomitant]
  9. IBUPROFEN [Concomitant]
  10. IPRATROPIUM BRM [Concomitant]
  11. IPRATROPIUM BROMIDE [Concomitant]
  12. LORATADINE [Concomitant]
  13. MONTELUKAST [Concomitant]
  14. PENTOXIFYLLINE [Concomitant]
  15. SALMETEROL [Concomitant]
  16. SIMVASTATIN [Concomitant]
  17. TERAZOSIN HCL [Concomitant]
  18. THEOPHYLLINE [Concomitant]

REACTIONS (2)
  - BLOOD PRESSURE DIASTOLIC DECREASED [None]
  - DIZZINESS [None]
